FAERS Safety Report 18703113 (Version 1)
Quarter: 2021Q1

REPORT INFORMATION
  Report Type: Spontaneous
  Country: IT (occurrence: IT)
  Receive Date: 20210105
  Receipt Date: 20210105
  Transmission Date: 20210419
  Serious: Yes (Other)
  Sender: FDA-Public Use
  Company Number: IT-GUERBET-IT-20200117

PATIENT
  Age: 24 Year
  Sex: Female

DRUGS (1)
  1. DOTAREM [Suspect]
     Active Substance: GADOTERATE MEGLUMINE
     Indication: MAGNETIC RESONANCE IMAGING BRAIN
     Route: 042
     Dates: start: 20201203, end: 20201203

REACTIONS (5)
  - Nasal congestion [Recovering/Resolving]
  - Dysphagia [Recovering/Resolving]
  - Sneezing [Recovering/Resolving]
  - Hypersensitivity [Recovering/Resolving]
  - Conjunctival hyperaemia [Recovering/Resolving]
